FAERS Safety Report 11247328 (Version 1)
Quarter: 2015Q3

REPORT INFORMATION
  Report Type: Spontaneous
  Country: GB (occurrence: None)
  Receive Date: 20150706
  Receipt Date: 20150706
  Transmission Date: 20151125
  Serious: Yes (Hospitalization, Other)
  Sender: FDA-Public Use
  Company Number: CL-638-2015

PATIENT
  Age: 66 Year
  Sex: Female

DRUGS (5)
  1. METRONIDAZOLE. [Suspect]
     Active Substance: METRONIDAZOLE
     Dosage: 400 MG   BD     ORAL
     Route: 048
     Dates: start: 20150526, end: 20150528
  2. SOTALOL. [Concomitant]
     Active Substance: SOTALOL
  3. PERINDOPRIL [Concomitant]
     Active Substance: PERINDOPRIL
  4. OMEPRAZOLE. [Concomitant]
     Active Substance: OMEPRAZOLE
  5. WARFARIN [Concomitant]
     Active Substance: WARFARIN

REACTIONS (4)
  - Visual impairment [None]
  - Feeling abnormal [None]
  - Visual acuity reduced [None]
  - Cerebrovascular accident [None]

NARRATIVE: CASE EVENT DATE: 20150527
